FAERS Safety Report 10609738 (Version 1)
Quarter: 2014Q4

REPORT INFORMATION
  Report Type: Spontaneous
  Country: GB (occurrence: None)
  Receive Date: 20141124
  Receipt Date: 20141124
  Transmission Date: 20150529
  Serious: Yes (Other)
  Sender: FDA-Public Use
  Company Number: IMP_08220_2014

PATIENT
  Age: 51 Year
  Sex: Male

DRUGS (3)
  1. TINZAPARIN [Suspect]
     Active Substance: TINZAPARIN
     Indication: ANTICOAGULANT THERAPY
     Dosage: (1 WEEK 2 DAYS UNTIL NOT CONTINUING)?25000 UNITS, QD SUBCUTANEOUS)
     Route: 058
  2. ASPIRIN (ASPIRIN) [Suspect]
     Active Substance: ASPIRIN
     Indication: ANTICOAGULANT THERAPY
  3. DIPYRIDAMOLE. [Suspect]
     Active Substance: DIPYRIDAMOLE
     Indication: ANTICOAGULANT THERAPY
     Dosage: (75 MG 3X/WEEK)

REACTIONS (3)
  - Injection site swelling [None]
  - Muscle haemorrhage [None]
  - Compartment syndrome [None]
